FAERS Safety Report 6398252-4 (Version None)
Quarter: 2009Q4

REPORT INFORMATION
  Report Type: 
  Country: None (occurrence: None)
  Receive Date: 20091013
  Receipt Date: 20090930
  Transmission Date: 20100525
  Serious: Yes (Other)
  Sender: FDA-Public Use
  Company Number: IN-PFIZER INC-2009277147

PATIENT
  Age: 2 Month

DRUGS (3)
  1. SILDENAFIL CITRATE [Suspect]
     Indication: PULMONARY HYPERTENSION
     Dosage: 0.3 MG/KG, 3X/DAY
  2. DIGOXIN [Concomitant]
     Indication: CARDIAC FAILURE
     Dosage: UNK
  3. FUROSEMIDE [Concomitant]
     Indication: CARDIAC FAILURE
     Dosage: UNK

REACTIONS (2)
  - HYPERHIDROSIS [None]
  - TACHYCARDIA [None]
